FAERS Safety Report 7908983-X (Version None)
Quarter: 2011Q4

REPORT INFORMATION
  Report Type: 
  Country: None (occurrence: None)
  Receive Date: 20111108
  Receipt Date: 20111026
  Transmission Date: 20120403
  Serious: Yes (Other)
  Sender: FDA-Public Use
  Company Number: 2011SP050701

PATIENT
  Age: 71 Year
  Sex: Male

DRUGS (7)
  1. PAXIL [Concomitant]
  2. ALBUTEROL [Concomitant]
  3. LOZIDE /00340101/ [Concomitant]
  4. HYTRIN [Concomitant]
  5. ALTACE [Concomitant]
  6. GARASONE [Suspect]
     Indication: EAR INFECTION
  7. RABEPRAZOLE SODIUM [Concomitant]

REACTIONS (2)
  - CONFUSIONAL STATE [None]
  - AMNESIA [None]
